FAERS Safety Report 20720061 (Version 2)
Quarter: 2022Q4

REPORT INFORMATION
  Report Type: Spontaneous
  Country: US (occurrence: US)
  Receive Date: 20220418
  Receipt Date: 20221116
  Transmission Date: 20230112
  Serious: No
  Sender: FDA-Public Use
  Company Number: US-PFIZER INC-202200561407

PATIENT
  Age: 73 Year
  Sex: Male

DRUGS (1)
  1. METHOTREXATE SODIUM [Suspect]
     Active Substance: METHOTREXATE SODIUM
     Dosage: UNK

REACTIONS (5)
  - Abdominal discomfort [Unknown]
  - Pain in extremity [Unknown]
  - Fatigue [Unknown]
  - Abdominal discomfort [Unknown]
  - Inflammation [Not Recovered/Not Resolved]
